FAERS Safety Report 4302841-8 (Version None)
Quarter: 2004Q1

REPORT INFORMATION
  Report Type: 
  Country: None (occurrence: None)
  Receive Date: 20040224
  Receipt Date: 20031106
  Transmission Date: 20041129
  Serious: Yes (Other)
  Sender: FDA-Public Use
  Company Number: US-BRISTOL-MYERS SQUIBB COMPANY-12431045

PATIENT
  Sex: Male

DRUGS (3)
  1. AVAPRO [Suspect]
     Indication: HYPERTENSION
     Route: 048
     Dates: start: 20030727
  2. LABETALOL HCL [Suspect]
     Indication: HYPERTENSION
     Dosage: 100 MG IN THE MORNING AND 150 MG IN THE EVENING(200-250 MG TOTAL PER DAY).
     Route: 048
     Dates: start: 20030727, end: 20030830
  3. NORVASC [Concomitant]
     Route: 048
     Dates: start: 20030727

REACTIONS (2)
  - HEPATITIS [None]
  - HYPOTENSION [None]
